FAERS Safety Report 11805303 (Version 1)
Quarter: 2015Q4

REPORT INFORMATION
  Report Type: Spontaneous
  Country: US (occurrence: US)
  Receive Date: 20151206
  Receipt Date: 20151206
  Transmission Date: 20160305
  Serious: No
  Sender: FDA-Public Use
  Company Number: US-ASTRAZENECA-2015SF12065

PATIENT
  Age: 65 Year
  Sex: Male
  Weight: 122.5 kg

DRUGS (2)
  1. PLAVIX [Concomitant]
     Active Substance: CLOPIDOGREL BISULFATE
  2. BYDUREON [Suspect]
     Active Substance: EXENATIDE
     Indication: TYPE 2 DIABETES MELLITUS
     Route: 058
     Dates: start: 201501

REACTIONS (4)
  - Injection site bruising [Unknown]
  - Injection site haemorrhage [Unknown]
  - Product quality issue [Unknown]
  - Injection site pain [Unknown]
